FAERS Safety Report 8712742 (Version 2)
Quarter: 2012Q4

REPORT INFORMATION
  Report Type: 
  Country: SE (occurrence: SE)
  Receive Date: 20120808
  Receipt Date: 20121008
  Transmission Date: 20130627
  Serious: Yes (Death, Other)
  Sender: FDA-Public Use
  Company Number: SE-AMGEN-SWESP2012048880

PATIENT
  Age: 13 Month
  Sex: Male

DRUGS (1)
  1. NEUPOGEN [Suspect]
     Indication: INFANTILE GENETIC AGRANULOCYTOSIS
     Dosage: 60 mug/kg, qd

REACTIONS (3)
  - Malignant histiocytosis [Fatal]
  - Leukaemia [Fatal]
  - Myelodysplastic syndrome [Unknown]
